FAERS Safety Report 6809859-1 (Version None)
Quarter: 2010Q2

REPORT INFORMATION
  Report Type: 
  Country: None (occurrence: None)
  Receive Date: 20100630
  Receipt Date: 20100618
  Transmission Date: 20101027
  Serious: Yes (Other)
  Sender: FDA-Public Use
  Company Number: B0659649A

PATIENT
  Sex: Female

DRUGS (2)
  1. NICABATE [Suspect]
     Route: 062
  2. LIPITOR [Suspect]
     Indication: DRUG USE FOR UNKNOWN INDICATION
     Dosage: 20MG PER DAY
     Route: 065

REACTIONS (3)
  - DEPRESSED MOOD [None]
  - DRUG INTERACTION [None]
  - MEMORY IMPAIRMENT [None]
